FAERS Safety Report 25101491 (Version 1)
Quarter: 2025Q1

REPORT INFORMATION
  Report Type: Report from Study
  Country: IT (occurrence: IT)
  Receive Date: 20250320
  Receipt Date: 20250320
  Transmission Date: 20250409
  Serious: Yes (Hospitalization, Other)
  Sender: MYLAN
  Company Number: None

PATIENT
  Age: 19 Year
  Sex: Female

DRUGS (12)
  1. VENLAFAXINE [Suspect]
     Active Substance: VENLAFAXINE HYDROCHLORIDE
     Indication: Product used for unknown indication
     Dates: start: 20250212, end: 20250212
  2. VENLAFAXINE [Suspect]
     Active Substance: VENLAFAXINE HYDROCHLORIDE
     Route: 048
     Dates: start: 20250212, end: 20250212
  3. VENLAFAXINE [Suspect]
     Active Substance: VENLAFAXINE HYDROCHLORIDE
     Route: 048
     Dates: start: 20250212, end: 20250212
  4. VENLAFAXINE [Suspect]
     Active Substance: VENLAFAXINE HYDROCHLORIDE
     Dates: start: 20250212, end: 20250212
  5. LITHIUM CARBONATE [Suspect]
     Active Substance: LITHIUM CARBONATE
     Indication: Product used for unknown indication
     Dates: start: 20250212, end: 20250212
  6. LITHIUM CARBONATE [Suspect]
     Active Substance: LITHIUM CARBONATE
     Route: 048
     Dates: start: 20250212, end: 20250212
  7. LITHIUM CARBONATE [Suspect]
     Active Substance: LITHIUM CARBONATE
     Route: 048
     Dates: start: 20250212, end: 20250212
  8. LITHIUM CARBONATE [Suspect]
     Active Substance: LITHIUM CARBONATE
     Dates: start: 20250212, end: 20250212
  9. TEGRETOL [Suspect]
     Active Substance: CARBAMAZEPINE
     Indication: Product used for unknown indication
     Dates: start: 20250212, end: 20250212
  10. TEGRETOL [Suspect]
     Active Substance: CARBAMAZEPINE
     Route: 048
     Dates: start: 20250212, end: 20250212
  11. TEGRETOL [Suspect]
     Active Substance: CARBAMAZEPINE
     Route: 048
     Dates: start: 20250212, end: 20250212
  12. TEGRETOL [Suspect]
     Active Substance: CARBAMAZEPINE
     Dates: start: 20250212, end: 20250212

REACTIONS (4)
  - Toxicity to various agents [Recovering/Resolving]
  - Drug abuse [Unknown]
  - Overdose [Unknown]
  - Intentional product misuse [Unknown]

NARRATIVE: CASE EVENT DATE: 20250212
